FAERS Safety Report 4759030-2 (Version None)
Quarter: 2005Q3

REPORT INFORMATION
  Report Type: 
  Country: None (occurrence: None)
  Receive Date: 20050901
  Receipt Date: 20050824
  Transmission Date: 20060218
  Serious: Yes (Hospitalization, Other)
  Sender: FDA-Public Use
  Company Number: US-GLAXOSMITHKLINE-A0571842A

PATIENT
  Sex: Female

DRUGS (3)
  1. COREG [Suspect]
     Indication: HYPERTENSION
     Route: 048
  2. DIABETES MEDICATION [Concomitant]
  3. VERAPAMIL [Concomitant]

REACTIONS (2)
  - ATRIAL FIBRILLATION [None]
  - BLOOD POTASSIUM INCREASED [None]
